FAERS Safety Report 13819297 (Version 7)
Quarter: 2017Q3

REPORT INFORMATION
  Report Type: Report from Study
  Country: IE (occurrence: IE)
  Receive Date: 20170801
  Receipt Date: 20170922
  Transmission Date: 20171127
  Serious: Yes (Life-Threatening, Hospitalization, Other)
  Sender: FDA-Public Use
  Company Number: IE-JNJFOC-20170723847

PATIENT
  Age: 69 Year
  Sex: Female

DRUGS (8)
  1. ROSUVASTATIN. [Concomitant]
     Active Substance: ROSUVASTATIN
     Route: 050
  2. KALCIPOS [Concomitant]
     Active Substance: CALCIUM CARBONATE
     Route: 050
  3. ESOMEPRAZOLE [Concomitant]
     Active Substance: ESOMEPRAZOLE
     Route: 050
  4. IMBRUVICA [Suspect]
     Active Substance: IBRUTINIB
     Indication: ACUTE LYMPHOCYTIC LEUKAEMIA
     Route: 048
     Dates: start: 20170723
  5. VALTREX [Concomitant]
     Active Substance: VALACYCLOVIR HYDROCHLORIDE
     Route: 050
  6. IMBRUVICA [Suspect]
     Active Substance: IBRUTINIB
     Indication: ACUTE LYMPHOCYTIC LEUKAEMIA
     Route: 048
     Dates: start: 20170802
  7. ELTROXIN [Concomitant]
     Active Substance: LEVOTHYROXINE
     Route: 050
  8. IBANDRONIC ACID. [Concomitant]
     Active Substance: IBANDRONIC ACID
     Route: 050

REACTIONS (6)
  - Pyrexia [Not Recovered/Not Resolved]
  - Tenderness [Not Recovered/Not Resolved]
  - Haemoglobin decreased [Not Recovered/Not Resolved]
  - Fatigue [Not Recovered/Not Resolved]
  - Pollakiuria [Not Recovered/Not Resolved]
  - Musculoskeletal pain [Not Recovered/Not Resolved]

NARRATIVE: CASE EVENT DATE: 20170723
